FAERS Safety Report 23107929 (Version 1)
Quarter: 2023Q4

REPORT INFORMATION
  Report Type: Spontaneous
  Country: US (occurrence: US)
  Receive Date: 20231026
  Receipt Date: 20231026
  Transmission Date: 20240110
  Serious: Yes (Other)
  Sender: FDA-Public Use
  Company Number: US-drreddys-LIT/USA/23/0180470

PATIENT
  Age: 61 Year
  Sex: Female

DRUGS (6)
  1. BUDESONIDE [Suspect]
     Active Substance: BUDESONIDE
     Indication: Colitis microscopic
  2. TACROLIMUS [Suspect]
     Active Substance: TACROLIMUS
     Indication: Colitis microscopic
  3. COLESEVELAM HYDROCHLORIDE [Suspect]
     Active Substance: COLESEVELAM HYDROCHLORIDE
     Indication: Colitis microscopic
  4. VEDOLIZUMAB [Concomitant]
     Active Substance: VEDOLIZUMAB
     Indication: Colitis microscopic
  5. TOFACITINIB [Concomitant]
     Active Substance: TOFACITINIB
     Indication: Colitis microscopic
  6. OZANIMOD [Concomitant]
     Active Substance: OZANIMOD
     Indication: Colitis microscopic

REACTIONS (4)
  - Colitis microscopic [Recovered/Resolved]
  - Disease progression [Unknown]
  - Drug ineffective [Unknown]
  - Product use in unapproved indication [Unknown]
